FAERS Safety Report 20127812 (Version 1)
Quarter: 2021Q4

REPORT INFORMATION
  Report Type: Spontaneous
  Country: ES (occurrence: ES)
  Receive Date: 20211129
  Receipt Date: 20211129
  Transmission Date: 20220303
  Serious: Yes (Other)
  Sender: FDA-Public Use
  Company Number: ES-BAUSCH-BL-2021-039126

PATIENT
  Age: 56 Year
  Sex: Female

DRUGS (2)
  1. RIFAXIMIN [Suspect]
     Active Substance: RIFAXIMIN
     Indication: Diverticulum intestinal
     Route: 048
     Dates: start: 20160111, end: 20190620
  2. POTASSIUM CITRATE [Concomitant]
     Active Substance: POTASSIUM CITRATE
     Indication: Product used for unknown indication
     Route: 048
     Dates: start: 20131204

REACTIONS (1)
  - Hyperoxaluria [Recovering/Resolving]

NARRATIVE: CASE EVENT DATE: 20160427
